FAERS Safety Report 4889812-8 (Version None)
Quarter: 2006Q1

REPORT INFORMATION
  Report Type: 
  Country: None (occurrence: None)
  Receive Date: 20060124
  Receipt Date: 20051212
  Transmission Date: 20060701
  Serious: Yes (Hospitalization)
  Sender: FDA-Public Use
  Company Number: US-MERCK-0512USA02150

PATIENT
  Age: 71 Year
  Sex: Male
  Weight: 107 kg

DRUGS (22)
  1. ASPIRIN [Concomitant]
     Indication: PROPHYLAXIS
     Route: 065
     Dates: start: 20011101, end: 20050701
  2. PLENDIL [Concomitant]
     Route: 048
     Dates: start: 20020101, end: 20050701
  3. ZOCOR [Concomitant]
     Route: 065
     Dates: start: 20011101, end: 20050701
  4. VITAMINS (UNSPECIFIED) [Concomitant]
     Route: 065
  5. VITAMIN B (UNSPECIFIED) [Concomitant]
     Route: 065
  6. VIOXX [Suspect]
     Indication: BACK PAIN
     Route: 048
     Dates: start: 20011022, end: 20011230
  7. CATAPRES-TTS-1 [Concomitant]
     Indication: HYPERTENSION
     Route: 065
     Dates: start: 19900101
  8. GLUCOPHAGE [Concomitant]
     Route: 065
     Dates: end: 20050701
  9. DIABINESE [Concomitant]
     Route: 065
  10. PRILOSEC [Concomitant]
     Indication: GASTROOESOPHAGEAL REFLUX DISEASE
     Route: 065
  11. VASOTEC [Concomitant]
     Indication: HYPERTENSION
     Route: 048
     Dates: start: 19900101, end: 20011201
  12. CARDURA [Concomitant]
     Route: 065
  13. TEN-K [Concomitant]
     Indication: ELECTROLYTE SUBSTITUTION THERAPY
     Route: 065
  14. KLONOPIN [Concomitant]
     Indication: NEUROPATHY
     Route: 065
     Dates: end: 20050701
  15. COUMADIN [Concomitant]
     Indication: ANTICOAGULANT THERAPY
     Route: 065
     Dates: start: 20011101, end: 20011201
  16. FUROSEMIDE [Concomitant]
     Indication: HYPERTENSION
     Route: 065
     Dates: start: 19900101, end: 20050701
  17. FUROSEMIDE [Concomitant]
     Indication: FLUID RETENTION
     Route: 065
     Dates: start: 19900101, end: 20050701
  18. COREG [Concomitant]
     Indication: HYPERTENSION
     Route: 065
     Dates: start: 19900101, end: 20050701
  19. DIGOXIN [Concomitant]
     Route: 065
     Dates: start: 19900101, end: 20050701
  20. AMITRIPTYLIN [Concomitant]
     Route: 065
  21. ASCORBIC ACID [Concomitant]
     Route: 065
  22. ZOLOFT [Concomitant]
     Route: 065
     Dates: start: 20000101, end: 20050701

REACTIONS (18)
  - ANGINA PECTORIS [None]
  - ANXIETY [None]
  - BUNDLE BRANCH BLOCK BILATERAL [None]
  - CARDIAC FAILURE CONGESTIVE [None]
  - CATARACT [None]
  - COLITIS [None]
  - CORONARY ARTERY DISEASE [None]
  - DIVERTICULUM [None]
  - DUODENITIS [None]
  - GASTRITIS EROSIVE [None]
  - GASTROINTESTINAL HAEMORRHAGE [None]
  - HAEMORRHAGE [None]
  - HYPERTONIC BLADDER [None]
  - INGUINAL HERNIA [None]
  - INSOMNIA [None]
  - MALIGNANT MELANOMA [None]
  - POLYP [None]
  - RASH [None]
